FAERS Safety Report 24235415 (Version 1)
Quarter: 2024Q3

REPORT INFORMATION
  Report Type: Report from Study
  Country: CA (occurrence: CA)
  Receive Date: 20240821
  Receipt Date: 20240821
  Transmission Date: 20241017
  Serious: Yes (Other)
  Sender: ABBVIE
  Company Number: CA-ABBVIE-5883806

PATIENT
  Sex: Female

DRUGS (1)
  1. SKYRIZI [Suspect]
     Active Substance: RISANKIZUMAB-RZAA
     Indication: Crohn^s disease
     Route: 058
     Dates: start: 20230825

REACTIONS (8)
  - Fistula [Unknown]
  - Large intestinal stenosis [Unknown]
  - Megacolon [Unknown]
  - Colonic abscess [Unknown]
  - Volvulus [Unknown]
  - Intestinal perforation [Unknown]
  - Stoma site pain [Unknown]
  - Obstruction [Unknown]

NARRATIVE: CASE EVENT DATE: 20240201
